FAERS Safety Report 5971448-9 (Version None)
Quarter: 2008Q4

REPORT INFORMATION
  Report Type: 
  Country: None (occurrence: None)
  Receive Date: 20081201
  Receipt Date: 20081118
  Transmission Date: 20090506
  Serious: Yes (Hospitalization, Other)
  Sender: FDA-Public Use
  Company Number: CA-JNJFOC-20080806056

PATIENT
  Sex: Female
  Weight: 50.3 kg

DRUGS (5)
  1. REMICADE [Suspect]
     Dosage: 4 DOSES ADMINISTERED
     Route: 042
  2. REMICADE [Suspect]
     Dosage: DOSE 2 + 3, DATES UNKNOWN
     Route: 042
  3. REMICADE [Suspect]
     Indication: CROHN'S DISEASE
     Route: 042
  4. PREDNISONE TAB [Concomitant]
  5. PANTOPRAZOLE SODIUM [Concomitant]

REACTIONS (1)
  - DISSEMINATED TUBERCULOSIS [None]
